FAERS Safety Report 15335294 (Version 2)
Quarter: 2018Q4

REPORT INFORMATION
  Report Type: Spontaneous
  Country: FR (occurrence: FR)
  Receive Date: 20180830
  Receipt Date: 20181122
  Transmission Date: 20190204
  Serious: Yes (Other)
  Sender: FDA-Public Use
  Company Number: PHHY2018FR081968

PATIENT
  Age: 38 Year
  Sex: Female
  Weight: 52 kg

DRUGS (4)
  1. SERETIDE [Concomitant]
     Active Substance: FLUTICASONE PROPIONATE\SALMETEROL XINAFOATE
     Indication: PRODUCT USED FOR UNKNOWN INDICATION
     Dosage: UNK
     Route: 065
  2. ANSATIPINE [Suspect]
     Active Substance: RIFABUTIN
     Indication: MYCOBACTERIUM AVIUM COMPLEX INFECTION
     Dosage: 300 MG, QD
     Route: 048
     Dates: start: 20180109
  3. CLARITHROMYCIN. [Suspect]
     Active Substance: CLARITHROMYCIN
     Indication: MYCOBACTERIUM AVIUM COMPLEX INFECTION
     Dosage: 1000 MG, QD
     Route: 048
     Dates: start: 20180109
  4. DEXAMBUTOL [Suspect]
     Active Substance: ETHAMBUTOL HYDROCHLORIDE
     Indication: MYCOBACTERIUM AVIUM COMPLEX INFECTION
     Dosage: 750 MG, QD
     Route: 048
     Dates: start: 20180109

REACTIONS (2)
  - Arthralgia [Not Recovered/Not Resolved]
  - Tooth deposit [Not Recovered/Not Resolved]

NARRATIVE: CASE EVENT DATE: 2018
